FAERS Safety Report 8544349-X (Version None)
Quarter: 2012Q3

REPORT INFORMATION
  Report Type: 
  Country: None (occurrence: None)
  Receive Date: 20120727
  Receipt Date: 20120607
  Transmission Date: 20120928
  Serious: Yes (Death, Other)
  Sender: FDA-Public Use
  Company Number: US-009507513-2012SP024788

PATIENT

DRUGS (12)
  1. CLARITIN REDITABS [Suspect]
     Indication: SNEEZING
  2. LATANOPROST [Concomitant]
     Indication: GLAUCOMA
     Dosage: UNK UNK, UNKNOWN
  3. FLUTICASONE PROPIONATE [Concomitant]
     Indication: ASTHMA
     Dosage: UNK UNK, UNKNOWN
  4. CLARITIN REDITABS [Suspect]
     Indication: RHINORRHOEA
  5. VITAMIN B COMPLEX CAP [Concomitant]
     Indication: PRODUCT USED FOR UNKNOWN INDICATION
     Dosage: UNK UNK, UNKNOWN
  6. CLARITIN REDITABS [Suspect]
     Indication: SINUS DISORDER
  7. QVAR 40 [Concomitant]
     Indication: ASTHMA
     Dosage: UNK UNK, UNKNOWN
  8. MAGNESIUM (UNSPECIFIED) [Concomitant]
     Indication: PRODUCT USED FOR UNKNOWN INDICATION
     Dosage: UNK UNK, UNKNOWN
  9. POTASSIUM GLUCONATE TAB [Concomitant]
     Indication: PRODUCT USED FOR UNKNOWN INDICATION
     Dosage: UNK UNK, UNKNOWN
  10. CLARITIN REDITABS [Suspect]
     Indication: HYPERSENSITIVITY
     Dosage: 5 MG, QD
     Route: 048
     Dates: start: 20120408, end: 20120418
  11. ZOCOR [Concomitant]
     Indication: BLOOD CHOLESTEROL
     Dosage: UNK UNK, UNKNOWN
  12. MINERALS (UNSPECIFIED) (+) VITAMINS (UNSPECIFIED) [Concomitant]
     Indication: PRODUCT USED FOR UNKNOWN INDICATION
     Dosage: UNK UNK, UNKNOWN

REACTIONS (3)
  - EXPIRED DRUG ADMINISTERED [None]
  - PRURITUS [None]
  - HYPERSENSITIVITY [None]
